FAERS Safety Report 11689850 (Version 3)
Quarter: 2015Q4

REPORT INFORMATION
  Report Type: Report from Study
  Country: LB (occurrence: LB)
  Receive Date: 20151102
  Receipt Date: 20151111
  Transmission Date: 20160304
  Serious: Yes (Death, Hospitalization, Other)
  Sender: FDA-Public Use
  Company Number: PHHO2010LB18222

PATIENT
  Age: 48 Year
  Sex: Male
  Weight: 74 kg

DRUGS (1)
  1. EVEROLIMUS [Suspect]
     Active Substance: EVEROLIMUS
     Indication: METASTATIC RENAL CELL CARCINOMA
     Dosage: 10 MG, UNK
     Route: 048
     Dates: start: 20100713, end: 20110506

REACTIONS (4)
  - Malignant neoplasm progression [Fatal]
  - Paresis [Unknown]
  - Metastases to bone [Recovered/Resolved with Sequelae]
  - Second primary malignancy [Recovered/Resolved with Sequelae]

NARRATIVE: CASE EVENT DATE: 20100811
